FAERS Safety Report 18297482 (Version 1)
Quarter: 2020Q3

REPORT INFORMATION
  Report Type: Spontaneous
  Country: US (occurrence: US)
  Receive Date: 20200922
  Receipt Date: 20200922
  Transmission Date: 20201103
  Serious: Yes (Other)
  Sender: FDA-Public Use
  Company Number: US-PFIZER INC-2020364078

PATIENT
  Age: 30 Year
  Sex: Male

DRUGS (1)
  1. SOLU?MEDROL [Suspect]
     Active Substance: METHYLPREDNISOLONE SODIUM SUCCINATE
     Dosage: UNK
     Route: 042

REACTIONS (8)
  - Salivary hypersecretion [Unknown]
  - Drug ineffective [Unknown]
  - Musculoskeletal discomfort [Unknown]
  - Autonomic nervous system imbalance [Unknown]
  - Anhidrosis [Unknown]
  - Micturition disorder [Unknown]
  - Cardiovascular disorder [Unknown]
  - Pain in extremity [Unknown]
